FAERS Safety Report 5938122-6 (Version None)
Quarter: 2008Q4

REPORT INFORMATION
  Report Type: 
  Country: None (occurrence: None)
  Receive Date: 20081031
  Receipt Date: 20081020
  Transmission Date: 20090506
  Serious: Yes (Death, Other)
  Sender: FDA-Public Use
  Company Number: JP-PFIZER INC-2008088548

PATIENT

DRUGS (2)
  1. GABAPEN [Suspect]
     Indication: PAIN
     Route: 048
  2. ALL OTHER THERAPEUTIC PRODUCTS [Suspect]
     Indication: PAIN

REACTIONS (4)
  - DEATH [None]
  - DIZZINESS [None]
  - FALL [None]
  - SOMNOLENCE [None]
